FAERS Safety Report 17890505 (Version 1)
Quarter: 2020Q2

REPORT INFORMATION
  Report Type: Spontaneous
  Country: CY (occurrence: CY)
  Receive Date: 20200612
  Receipt Date: 20200612
  Transmission Date: 20200714
  Serious: Yes (Disabling, Other)
  Sender: FDA-Public Use
  Company Number: CY-FRESENIUS KABI-FK202005848

PATIENT
  Age: 63 Year
  Sex: Male

DRUGS (1)
  1. METHYLPREDNISOLONE (MANUFACTURER UNKNOWN) [Suspect]
     Active Substance: METHYLPREDNISOLONE
     Indication: MYELITIS TRANSVERSE
     Route: 042

REACTIONS (3)
  - Dural arteriovenous fistula [Recovered/Resolved with Sequelae]
  - Condition aggravated [Recovered/Resolved with Sequelae]
  - Spinal vessel congenital anomaly [Recovered/Resolved with Sequelae]
